FAERS Safety Report 10779208 (Version 1)
Quarter: 2015Q1

REPORT INFORMATION
  Report Type: Spontaneous
  Country: US (occurrence: None)
  Receive Date: 20150206
  Receipt Date: 20150206
  Transmission Date: 20150721
  Serious: No
  Sender: FDA-Public Use
  Company Number: None

PATIENT

DRUGS (2)
  1. LIDOCAINE HCL INJECTION (LIDOCAINE HCL) 1 % [Suspect]
     Active Substance: LIDOCAINE
     Dosage: DOSAGE FORM: INJECTABLE, ADM ROUTE: INJECTION, STRENGTH: 1 %, TYPE: SINGLE DOSE VIAL, SIZE: 30 ML
  2. BUPIVACAINE HCL (BUPIVACAINE HCL) 0.5 % [Suspect]
     Active Substance: BUPIVACAINE
     Dosage: DOSAGE FORM: INJECTABLE, ADM ROUTE: INJECTION, STRENGTH: 0.5 %, SINGLE DOSE VIAL, 30 ML?

REACTIONS (3)
  - Circumstance or information capable of leading to medication error [None]
  - Product packaging confusion [None]
  - Intercepted drug dispensing error [None]
